FAERS Safety Report 5155573-0 (Version None)
Quarter: 2006Q4

REPORT INFORMATION
  Report Type: 
  Country: None (occurrence: None)
  Receive Date: 20061113
  Receipt Date: 20061030
  Transmission Date: 20070319
  Serious: Yes (Hospitalization)
  Sender: FDA-Public Use
  Company Number: 2006-02550

PATIENT
  Age: 36 Year
  Sex: Male
  Weight: 89.3 kg

DRUGS (11)
  1. VELCADE [Suspect]
     Indication: MULTIPLE MYELOMA
     Dosage: 2.50 MG, UNK, INTRAVENOUS
     Route: 042
     Dates: start: 20060227, end: 20060501
  2. ZOMETA [Suspect]
     Indication: MULTIPLE MYELOMA
     Dosage: 4.00 MG, UNK, INTRAVENOUS
     Route: 042
     Dates: start: 20060307, end: 20060404
  3. METHYLPREDNISOLONE [Suspect]
     Indication: MULTIPLE MYELOMA
     Dosage: SEE IMAGE
     Dates: start: 20050302, end: 20060302
  4. METHYLPREDNISOLONE [Suspect]
     Indication: MULTIPLE MYELOMA
     Dosage: SEE IMAGE
     Dates: start: 20060309, end: 20060323
  5. MELPHALAN(MELPHALAN) VIAL [Suspect]
     Indication: MULTIPLE MYELOMA
     Dosage: 200 MG/M2, UNK, INTRAVENOUS
     Route: 042
     Dates: start: 20060309, end: 20060323
  6. NEURONTIN [Concomitant]
  7. LORAZEPAM [Concomitant]
  8. ACYCLOVIR [Concomitant]
  9. AMITRITPYLINE (AMITRITYLINE) [Concomitant]
  10. VITAMIN B6 [Concomitant]
  11. OXCODONE (OXYCODONE) [Concomitant]

REACTIONS (11)
  - DEPRESSED LEVEL OF CONSCIOUSNESS [None]
  - DIARRHOEA [None]
  - HYPOTENSION [None]
  - HYPOTONIA [None]
  - LETHARGY [None]
  - MUCOSAL INFLAMMATION [None]
  - NAUSEA [None]
  - NEURALGIA [None]
  - NEUROPATHY [None]
  - PHARYNGOLARYNGEAL PAIN [None]
  - VOMITING [None]
